FAERS Safety Report 14277026 (Version 2)
Quarter: 2017Q4

REPORT INFORMATION
  Report Type: Spontaneous
  Country: BR (occurrence: BR)
  Receive Date: 20171211
  Receipt Date: 20171219
  Transmission Date: 20180321
  Serious: Yes (Death)
  Sender: FDA-Public Use
  Company Number: BR-LPDUSPRD-20171670

PATIENT
  Age: 77 Year
  Sex: Female

DRUGS (1)
  1. VENOFER [Suspect]
     Active Substance: IRON SUCROSE
     Dosage: UNKNOWN
     Route: 042
     Dates: start: 20171114

REACTIONS (3)
  - Cardio-respiratory arrest [Fatal]
  - Adverse event [Fatal]
  - Intentional overdose [Fatal]

NARRATIVE: CASE EVENT DATE: 20171114
